FAERS Safety Report 14923839 (Version 1)
Quarter: 2018Q2

REPORT INFORMATION
  Report Type: Report from Study
  Country: US (occurrence: US)
  Receive Date: 20180522
  Receipt Date: 20180522
  Transmission Date: 20180711
  Serious: Yes (Hospitalization)
  Sender: FDA-Public Use
  Company Number: US-EXELIXIS-CABO-18014032

PATIENT
  Sex: Male
  Weight: 109.75 kg

DRUGS (1)
  1. CABOMETYX [Suspect]
     Active Substance: CABOZANTINIB S-MALATE
     Indication: CARCINOID TUMOUR
     Dosage: 60 MG, QD
     Route: 048
     Dates: start: 20180422, end: 20180429

REACTIONS (6)
  - Epistaxis [Unknown]
  - Haematochezia [Unknown]
  - Off label use [Unknown]
  - Blood urine present [Unknown]
  - Internal haemorrhage [Unknown]
  - Gingival bleeding [Unknown]
